FAERS Safety Report 25660106 (Version 1)
Quarter: 2025Q3

REPORT INFORMATION
  Report Type: Spontaneous
  Country: CN (occurrence: CN)
  Receive Date: 20250808
  Receipt Date: 20250808
  Transmission Date: 20251020
  Serious: Yes (Hospitalization)
  Sender: PFIZER
  Company Number: CN-PFIZER INC-PV202500095353

PATIENT
  Age: 19 Year
  Sex: Male
  Weight: 70 kg

DRUGS (4)
  1. CYTARABINE [Suspect]
     Active Substance: CYTARABINE
     Indication: Acute leukaemia
     Dosage: 0.200 G, 1X/DAY
     Route: 041
     Dates: start: 20250616, end: 20250622
  2. ETOPOSIDE [Suspect]
     Active Substance: ETOPOSIDE
     Indication: Acute leukaemia
     Dosage: 0.1 G, 1X/DAY
     Route: 041
     Dates: start: 20250617, end: 20250621
  3. DAUNORUBICIN HYDROCHLORIDE [Suspect]
     Active Substance: DAUNORUBICIN HYDROCHLORIDE
     Indication: Acute leukaemia
     Dosage: 70.000 MG, 1X/DAY
     Route: 041
     Dates: start: 20250616, end: 20250619
  4. VENETOCLAX [Suspect]
     Active Substance: VENETOCLAX
     Indication: Acute leukaemia
     Dosage: 100 MG, 1X/DAY
     Route: 041
     Dates: start: 20250616, end: 20250622

REACTIONS (3)
  - Myelosuppression [Unknown]
  - Disease recurrence [Unknown]
  - Hyperpyrexia [Recovering/Resolving]

NARRATIVE: CASE EVENT DATE: 20250601
